FAERS Safety Report 13336517 (Version 1)
Quarter: 2017Q1

REPORT INFORMATION
  Report Type: Spontaneous
  Country: US (occurrence: US)
  Receive Date: 20170314
  Receipt Date: 20170314
  Transmission Date: 20170428
  Serious: No
  Sender: FDA-Public Use
  Company Number: US-JAZZ-2017-US-001494

PATIENT
  Age: 63 Year
  Sex: Female

DRUGS (8)
  1. XYREM [Suspect]
     Active Substance: SODIUM OXYBATE
     Dosage: DOSE ADJUSTMENT
     Route: 048
     Dates: start: 2015, end: 201610
  2. XYREM [Suspect]
     Active Substance: SODIUM OXYBATE
     Dosage: 3.75G, BID
     Route: 048
     Dates: start: 201610
  3. XYREM [Suspect]
     Active Substance: SODIUM OXYBATE
     Indication: NARCOLEPSY
     Dosage: 2.25G, BID
     Route: 048
     Dates: start: 201508, end: 201508
  4. EPIPEN [Concomitant]
     Active Substance: EPINEPHRINE
  5. FAMOTIDINE. [Concomitant]
     Active Substance: FAMOTIDINE
  6. ALEVE [Concomitant]
     Active Substance: NAPROXEN SODIUM
  7. PROVIGIL [Concomitant]
     Active Substance: MODAFINIL
  8. RITALIN [Concomitant]
     Active Substance: METHYLPHENIDATE HYDROCHLORIDE

REACTIONS (1)
  - Unevaluable event [Recovering/Resolving]

NARRATIVE: CASE EVENT DATE: 201701
